FAERS Safety Report 14517640 (Version 2)
Quarter: 2018Q1

REPORT INFORMATION
  Report Type: Spontaneous
  Country: US (occurrence: US)
  Receive Date: 20180212
  Receipt Date: 20180213
  Transmission Date: 20180509
  Serious: Yes (Other)
  Sender: FDA-Public Use
  Company Number: US-PFIZER INC-2018056522

PATIENT
  Age: 59 Year
  Sex: Female
  Weight: 74.83 kg

DRUGS (7)
  1. QUETIAPINE FUMARATE. [Concomitant]
     Active Substance: QUETIAPINE FUMARATE
     Indication: AFFECTIVE DISORDER
     Dosage: UNK
  2. QUETIAPINE FUMARATE. [Concomitant]
     Active Substance: QUETIAPINE FUMARATE
     Indication: SLEEP DISORDER
  3. AMFETAMINE ASPARTATE W/AMFETAMINE [Concomitant]
     Dosage: 30 MG, UNK
  4. BUPRENORPHINE AND NALOXONE [Concomitant]
     Active Substance: BUPRENORPHINE\NALOXONE
     Dosage: 8 MG, UNK
  5. VENLAFAXINE HCL [Suspect]
     Active Substance: VENLAFAXINE HYDROCHLORIDE
     Indication: PSYCHOMOTOR HYPERACTIVITY
     Dosage: 150 MG, UNK
  6. LAMOTRIGINE. [Concomitant]
     Active Substance: LAMOTRIGINE
     Indication: BIPOLAR DISORDER
     Dosage: 200 MG, UNK
  7. VENLAFAXINE HCL [Suspect]
     Active Substance: VENLAFAXINE HYDROCHLORIDE
     Indication: ANXIETY
     Dosage: 300 MG, UNK

REACTIONS (10)
  - Withdrawal syndrome [Unknown]
  - Immobile [Unknown]
  - Feeling abnormal [Unknown]
  - Irritability [Unknown]
  - Chills [Recovered/Resolved]
  - Skull malformation [Unknown]
  - Influenza like illness [Unknown]
  - Cerebral disorder [Recovered/Resolved]
  - Head discomfort [Not Recovered/Not Resolved]
  - Confusional state [Unknown]

NARRATIVE: CASE EVENT DATE: 201801
